FAERS Safety Report 4796674-6 (Version None)
Quarter: 2005Q4

REPORT INFORMATION
  Report Type: 
  Country: None (occurrence: None)
  Receive Date: 20051006
  Receipt Date: 20051006
  Transmission Date: 20060501
  Serious: Yes (Hospitalization)
  Sender: FDA-Public Use
  Company Number: None

PATIENT
  Age: 59 Year
  Sex: Male
  Weight: 102.3 kg

DRUGS (12)
  1. METHADONE [Suspect]
     Indication: PAIN
     Dosage: 20 MG PO TID
     Route: 048
     Dates: end: 20041127
  2. SCOPOLAMINE [Suspect]
     Indication: NAUSEA
     Dosage: 1.5 MG PATCH TOP Q 72 HOURS
     Route: 061
     Dates: start: 20041124, end: 20041127
  3. SCOPOLAMINE [Suspect]
     Indication: PROPHYLAXIS
     Dosage: 1.5 MG PATCH TOP Q 72 HOURS
     Route: 061
     Dates: start: 20041124, end: 20041127
  4. SCOPOLAMINE [Suspect]
     Indication: VOMITING
     Dosage: 1.5 MG PATCH TOP Q 72 HOURS
     Route: 061
     Dates: start: 20041124, end: 20041127
  5. ESCITOPRAM [Concomitant]
  6. ZOLPIDEM TARTRATE [Concomitant]
  7. GABAPENTIN [Concomitant]
  8. AZITHROMYCIN [Concomitant]
  9. LACTULOSE [Concomitant]
  10. TOBRAMYCIN [Concomitant]
  11. SENNA/DOCUSATE [Concomitant]
  12. OXYCODONE AND ACETAMINOPHEN [Concomitant]

REACTIONS (3)
  - BONE PAIN [None]
  - CONFUSIONAL STATE [None]
  - MENTAL STATUS CHANGES [None]
